FAERS Safety Report 15057983 (Version 2)
Quarter: 2018Q3

REPORT INFORMATION
  Report Type: Spontaneous
  Country: JP (occurrence: JP)
  Receive Date: 20180625
  Receipt Date: 20180808
  Transmission Date: 20181010
  Serious: Yes (Hospitalization)
  Sender: FDA-Public Use
  Company Number: JP-ASTELLAS-2018JP011790

PATIENT
  Age: 33 Year
  Sex: Female
  Weight: 40 kg

DRUGS (10)
  1. REBAMIPIDE [Concomitant]
     Active Substance: REBAMIPIDE
     Indication: GASTRIC ULCER
     Route: 048
     Dates: start: 20140129
  2. GRACEPTOR [Suspect]
     Active Substance: TACROLIMUS
     Indication: RENAL TRANSPLANT
     Route: 048
     Dates: start: 20140131
  3. AMLODIPINE [Concomitant]
     Active Substance: AMLODIPINE BESYLATE
     Indication: HYPERTENSION
     Route: 048
     Dates: start: 20140127, end: 20170119
  4. MEDROL [Suspect]
     Active Substance: METHYLPREDNISOLONE
     Indication: RENAL TRANSPLANT
     Dosage: 2 MG, MON, WED, FRI
     Route: 048
     Dates: start: 20140129
  5. FAMOTIDINE. [Concomitant]
     Active Substance: FAMOTIDINE
     Indication: GASTRIC ULCER
     Route: 048
     Dates: start: 20160614
  6. FERROMIA [Concomitant]
     Active Substance: SODIUM FERROUS CITRATE
     Indication: IRON DEFICIENCY ANAEMIA
     Dosage: 50 MG, MON, WED, FRI
     Route: 048
     Dates: start: 20160819
  7. MIYA?BM [Concomitant]
     Active Substance: CLOSTRIDIUM BUTYRICUM SPORES STRAIN M-55
     Indication: DIARRHOEA
     Route: 048
     Dates: start: 20140129
  8. MEDROL [Suspect]
     Active Substance: METHYLPREDNISOLONE
     Indication: RENAL TRANSPLANT
     Route: 048
     Dates: start: 20140129
  9. AZANIN [Concomitant]
     Active Substance: AZATHIOPRINE
     Indication: RENAL TRANSPLANT
     Route: 048
     Dates: start: 20160118, end: 20170129
  10. AMLODIPINE [Concomitant]
     Active Substance: AMLODIPINE BESYLATE
     Route: 048
     Dates: start: 20170120

REACTIONS (3)
  - Gestational hypertension [Recovered/Resolved]
  - Maternal exposure during pregnancy [Unknown]
  - Anogenital warts [Recovered/Resolved]

NARRATIVE: CASE EVENT DATE: 20140926
